FAERS Safety Report 4897730-4 (Version None)
Quarter: 2006Q1

REPORT INFORMATION
  Report Type: 
  Country: None (occurrence: None)
  Receive Date: 20060201
  Receipt Date: 20060126
  Transmission Date: 20060701
  Serious: Yes (Other)
  Sender: FDA-Public Use
  Company Number: 2006UW01416

PATIENT
  Age: 37 Year
  Sex: Female
  Weight: 77.6 kg

DRUGS (3)
  1. SEROQUEL [Suspect]
     Indication: BIPOLAR DISORDER
     Route: 048
     Dates: start: 20041101, end: 20050601
  2. SEROQUEL [Suspect]
     Route: 048
     Dates: start: 20040601
  3. DEPAKOTE [Concomitant]

REACTIONS (5)
  - DIABETES INSIPIDUS [None]
  - HYPERPROLACTINAEMIA [None]
  - PITUITARY TUMOUR BENIGN [None]
  - VISUAL FIELD DEFECT [None]
  - WEIGHT INCREASED [None]
